FAERS Safety Report 15893913 (Version 1)
Quarter: 2019Q1

REPORT INFORMATION
  Report Type: Spontaneous
  Country: US (occurrence: US)
  Receive Date: 20190130
  Receipt Date: 20190130
  Transmission Date: 20190417
  Serious: Yes (Hospitalization, Disabling)
  Sender: FDA-Public Use
  Company Number: None

PATIENT
  Age: 53 Year
  Sex: Female
  Weight: 58.05 kg

DRUGS (17)
  1. DOMPERIDONE [Concomitant]
     Active Substance: DOMPERIDONE
  2. BENADRYL [Concomitant]
     Active Substance: DIPHENHYDRAMINE HYDROCHLORIDE
  3. VORICONAZOLE 200 MG [Suspect]
     Active Substance: VORICONAZOLE
     Indication: ASPERGILLUS INFECTION
     Dosage: ?          QUANTITY:1 TABLET(S);?
     Route: 048
     Dates: start: 20181019, end: 20190130
  4. OMEPRAZOLE. [Concomitant]
     Active Substance: OMEPRAZOLE
  5. LEVOTHYROXINE. [Concomitant]
     Active Substance: LEVOTHYROXINE
  6. SODIUM CITRATE. [Concomitant]
     Active Substance: SODIUM CITRATE
  7. TYLENOL [Concomitant]
     Active Substance: ACETAMINOPHEN
  8. BIOTIN [Concomitant]
     Active Substance: BIOTIN
  9. SYMBICORT [Concomitant]
     Active Substance: BUDESONIDE\FORMOTEROL FUMARATE DIHYDRATE
  10. BENTYL [Concomitant]
     Active Substance: DICYCLOMINE HYDROCHLORIDE
  11. LOSARTAN. [Concomitant]
     Active Substance: LOSARTAN
  12. TRAMADOL. [Concomitant]
     Active Substance: TRAMADOL
  13. TYLENOL ARTHRITIS PAIN [Concomitant]
     Active Substance: ACETAMINOPHEN
  14. SUPER B COMPLEX [Concomitant]
     Active Substance: CYANOCOBALAMIN\DEXPANTHENOL\NIACINAMIDE\PYRIDOXINE HYDROCHLORIDE\RIBOFLAVIN 5^-PHOSPHATE SODIUM\THIAMINE HYDROCHLORIDE\VITAMIN B COMPLEX
  15. VITAMIN C [Concomitant]
     Active Substance: ASCORBIC ACID
  16. PREDNISONE. [Concomitant]
     Active Substance: PREDNISONE
  17. CACITRIOL [Concomitant]

REACTIONS (10)
  - Swelling face [None]
  - Gait disturbance [None]
  - Bone pain [None]
  - Blister [None]
  - Insomnia [None]
  - Pain in extremity [None]
  - Visual impairment [None]
  - Vision blurred [None]
  - Hallucination [None]
  - Peripheral swelling [None]

NARRATIVE: CASE EVENT DATE: 20181115
